FAERS Safety Report 18646038 (Version 2)
Quarter: 2021Q1

REPORT INFORMATION
  Report Type: Spontaneous
  Country: US (occurrence: US)
  Receive Date: 20201221
  Receipt Date: 20210210
  Transmission Date: 20210419
  Serious: Yes (Hospitalization, Other)
  Sender: FDA-Public Use
  Company Number: US-JNJFOC-20201226663

PATIENT
  Age: 24 Year
  Sex: Female

DRUGS (5)
  1. ABILIFY [Concomitant]
     Active Substance: ARIPIPRAZOLE
  2. INVEGA SUSTENNA [Suspect]
     Active Substance: PALIPERIDONE PALMITATE
     Indication: SCHIZOAFFECTIVE DISORDER
  3. INVEGA SUSTENNA [Suspect]
     Active Substance: PALIPERIDONE PALMITATE
  4. FOLIC ACID. [Concomitant]
     Active Substance: FOLIC ACID
     Indication: ANAEMIA
  5. INVEGA SUSTENNA [Suspect]
     Active Substance: PALIPERIDONE PALMITATE
     Indication: SEASONAL AFFECTIVE DISORDER
     Route: 030
     Dates: start: 201904, end: 202006

REACTIONS (15)
  - Suicidal ideation [Recovered/Resolved]
  - Diabetes mellitus [Unknown]
  - Hallucination, olfactory [Unknown]
  - Hallucination, auditory [Unknown]
  - Abnormal dreams [Unknown]
  - Cardiac flutter [Unknown]
  - Hypoacusis [Unknown]
  - Headache [Recovered/Resolved]
  - Hallucination, visual [Unknown]
  - Hallucination [Unknown]
  - Polymenorrhoea [Unknown]
  - Dizziness [Unknown]
  - Injection site reaction [Unknown]
  - Feeling abnormal [Unknown]
  - Insomnia [Unknown]

NARRATIVE: CASE EVENT DATE: 2019
